FAERS Safety Report 23058794 (Version 1)
Quarter: 2023Q4

REPORT INFORMATION
  Report Type: Spontaneous
  Country: US (occurrence: US)
  Receive Date: 20231012
  Receipt Date: 20231012
  Transmission Date: 20240110
  Serious: No
  Sender: FDA-Public Use
  Company Number: US-PFIZER INC-202300322289

PATIENT

DRUGS (1)
  1. PAXLOVID [Suspect]
     Active Substance: NIRMATRELVIR\RITONAVIR
     Indication: COVID-19 treatment
     Dosage: UNK
     Dates: start: 20231008

REACTIONS (4)
  - Dysgeusia [Unknown]
  - Dyspnoea [Unknown]
  - Dysphagia [Unknown]
  - Tinnitus [Unknown]

NARRATIVE: CASE EVENT DATE: 20231008
